FAERS Safety Report 16152863 (Version 1)
Quarter: 2019Q2

REPORT INFORMATION
  Report Type: Spontaneous
  Country: FR (occurrence: FR)
  Receive Date: 20190403
  Receipt Date: 20190403
  Transmission Date: 20190711
  Serious: Yes (Hospitalization)
  Sender: FDA-Public Use
  Company Number: FR-ROCHE-2293847

PATIENT
  Age: 45 Year
  Sex: Female
  Weight: 51 kg

DRUGS (14)
  1. PRIMPERAN [Suspect]
     Active Substance: METOCLOPRAMIDE HYDROCHLORIDE
     Indication: NAUSEA
     Dosage: ON 15/FEB/2019, RECEIVED MOPST RECENT DOSE
     Route: 048
     Dates: start: 20190108
  2. RITONAVIR. [Concomitant]
     Active Substance: RITONAVIR
     Route: 065
  3. PREZISTA [Concomitant]
     Active Substance: DARUNAVIR ETHANOLATE
     Route: 065
  4. LEVETIRACETAM. [Suspect]
     Active Substance: LEVETIRACETAM
     Indication: SEIZURE
     Dosage: ON 15/FEB/2019, RECEIVED MOPST RECENT DOSE
     Route: 048
     Dates: start: 20190111
  5. BACTRIM [Suspect]
     Active Substance: SULFAMETHOXAZOLE\TRIMETHOPRIM
     Indication: PNEUMOCYSTIS JIROVECII PNEUMONIA
     Dosage: ON 15/FEB/2019, RECEIVED MOPST RECENT DOSE
     Route: 041
     Dates: start: 20190108
  6. ROVALCYTE [Suspect]
     Active Substance: VALGANCICLOVIR HYDROCHLORIDE
     Indication: CYTOMEGALOVIRUS INFECTION
     Dosage: ON 15/FEB/2019, RECEIVED MOPST RECENT DOSE
     Route: 048
     Dates: start: 20190120
  7. PHOSPHONEUROS [Suspect]
     Active Substance: CALCIUM PHOSPHATE, DIBASIC, ANHYDROUS\MAGNESIUM GLYCEROPHOSPHATE\PHOSPHORIC ACID\SODIUM PHOSPHATE, DIBASIC
     Indication: BLOOD PHOSPHORUS DECREASED
     Dosage: UNIT DOSE: 100 [DRP] ON 15/FEB/2019, RECEIVED MOPST RECENT DOSE
     Route: 048
     Dates: start: 20190109
  8. FUNGIZONE [Concomitant]
     Active Substance: AMPHOTERICIN B
     Route: 065
  9. VIREAD [Suspect]
     Active Substance: TENOFOVIR DISOPROXIL FUMARATE
     Indication: HIV TEST POSITIVE
     Dosage: ON 15/FEB/2019, RECEIVED MOPST RECENT DOSE
     Route: 065
     Dates: start: 20190203
  10. INTELENCE [Concomitant]
     Active Substance: ETRAVIRINE
     Route: 065
  11. FRAGMINE [Concomitant]
     Active Substance: DALTEPARIN SODIUM
     Route: 065
  12. ISENTRESS [Concomitant]
     Active Substance: RALTEGRAVIR POTASSIUM
     Route: 065
  13. ACIDE FOLIQUE [Suspect]
     Active Substance: FOLIC ACID
     Indication: ANAEMIA
     Dosage: ON 15/FEB/2019, RECEIVED MOPST RECENT DOSE
     Route: 048
     Dates: start: 20190109
  14. MAG 2 (FRANCE) [Suspect]
     Active Substance: MAGNESIUM
     Indication: BLOOD MAGNESIUM DECREASED
     Dosage: ON 15/FEB/2019, RECEIVED MOPST RECENT DOSE
     Route: 048
     Dates: start: 20190122

REACTIONS (4)
  - Rash papular [Recovered/Resolved]
  - Neutropenia [Recovered/Resolved]
  - Hyponatraemia [Recovering/Resolving]
  - Eosinophilia [Recovering/Resolving]

NARRATIVE: CASE EVENT DATE: 20190209
